FAERS Safety Report 9405662 (Version 2)
Quarter: 2013Q3

REPORT INFORMATION
  Report Type: Report from Study
  Country: GB (occurrence: GB)
  Receive Date: 20130717
  Receipt Date: 20130815
  Transmission Date: 20140515
  Serious: Yes (Hospitalization)
  Sender: FDA-Public Use
  Company Number: GB-JNJFOC-20130708363

PATIENT
  Age: 55 Year
  Sex: Male

DRUGS (5)
  1. GOLIMUMAB [Suspect]
     Indication: PSORIATIC ARTHROPATHY
     Route: 058
     Dates: start: 20130629
  2. GOLIMUMAB [Suspect]
     Indication: PSORIATIC ARTHROPATHY
     Route: 058
     Dates: start: 20120329
  3. CELEBREX [Concomitant]
     Route: 065
  4. BUTRANS [Concomitant]
     Route: 065
  5. RAMIPRIL [Concomitant]
     Route: 065

REACTIONS (1)
  - Skin infection [Recovered/Resolved]
